FAERS Safety Report 23384675 (Version 1)
Quarter: 2024Q1

REPORT INFORMATION
  Report Type: Spontaneous
  Country: US (occurrence: US)
  Receive Date: 20240109
  Receipt Date: 20240109
  Transmission Date: 20240410
  Serious: No
  Sender: FDA-Public Use
  Company Number: US-PFIZER INC-202400003420

PATIENT
  Age: 56 Year
  Sex: Female

DRUGS (4)
  1. BOSULIF [Suspect]
     Active Substance: BOSUTINIB MONOHYDRATE
     Indication: Chronic myeloid leukaemia
     Dosage: 300 MG PER DAY
     Route: 048
  2. DUPIXENT [Concomitant]
     Active Substance: DUPILUMAB
     Dosage: UNK
  3. PROLIA [Concomitant]
     Active Substance: DENOSUMAB
     Dosage: UNK
  4. TUMS [Concomitant]
     Active Substance: CALCIUM CARBONATE
     Dosage: UNK

REACTIONS (7)
  - Hepatic enzyme abnormal [Unknown]
  - Hepatic enzyme increased [Unknown]
  - Arthralgia [Unknown]
  - Myalgia [Not Recovered/Not Resolved]
  - Muscular weakness [Not Recovered/Not Resolved]
  - Asthenia [Not Recovered/Not Resolved]
  - Fatigue [Not Recovered/Not Resolved]
